FAERS Safety Report 6528699-4 (Version None)
Quarter: 2009Q4

REPORT INFORMATION
  Report Type: 
  Country: None (occurrence: None)
  Receive Date: 20091222
  Receipt Date: 20091215
  Transmission Date: 20100525
  Serious: Yes (Death, Other)
  Sender: FDA-Public Use
  Company Number: CN-JNJFOC-20091204513

PATIENT
  Sex: Female

DRUGS (1)
  1. DACOGEN [Suspect]
     Indication: MYELODYSPLASTIC SYNDROME
     Dosage: 15 MG/M2, INTRAVENOUS
     Route: 042
     Dates: start: 20091120, end: 20091122

REACTIONS (6)
  - BONE MARROW FAILURE [None]
  - INFECTION [None]
  - PNEUMONIA [None]
  - PULMONARY HAEMORRHAGE [None]
  - REFRACTORINESS TO PLATELET TRANSFUSION [None]
  - RESPIRATORY FAILURE [None]
